FAERS Safety Report 4560505-X (Version None)
Quarter: 2005Q1

REPORT INFORMATION
  Report Type: 
  Country: None (occurrence: None)
  Receive Date: 20050125
  Receipt Date: 20050114
  Transmission Date: 20050727
  Serious: Yes (Life-Threatening, Hospitalization, Disabling)
  Sender: FDA-Public Use
  Company Number: US-MERCK-0501USA02113

PATIENT
  Age: 65 Year
  Sex: Female

DRUGS (3)
  1. VIOXX [Suspect]
     Indication: FIBROMYALGIA
     Route: 048
     Dates: end: 20040529
  2. VIOXX [Suspect]
     Indication: ARTHRITIS
     Route: 048
     Dates: end: 20040529
  3. ZETIA [Concomitant]
     Route: 048

REACTIONS (3)
  - CEREBROVASCULAR ACCIDENT [None]
  - VERTIGO [None]
  - VISUAL DISTURBANCE [None]
